FAERS Safety Report 7477588-X (Version None)
Quarter: 2011Q2

REPORT INFORMATION
  Report Type: 
  Country: None (occurrence: None)
  Receive Date: 20110513
  Receipt Date: 20110503
  Transmission Date: 20111010
  Serious: Yes (Death, Other)
  Sender: FDA-Public Use
  Company Number: DE-JNJFOC-20101101889

PATIENT
  Age: 88 Year
  Sex: Male

DRUGS (11)
  1. AGGRENOX [Concomitant]
     Route: 048
  2. MELPERON [Suspect]
     Route: 048
  3. LANITOP [Concomitant]
     Route: 048
  4. OMEPRAZOLE [Concomitant]
     Route: 048
  5. PREDNISOLONE [Concomitant]
     Route: 048
  6. MELPERON [Suspect]
     Indication: ILL-DEFINED DISORDER
     Route: 048
  7. ATACAND [Concomitant]
     Route: 048
  8. RISPERDAL [Suspect]
     Indication: PRODUCT USED FOR UNKNOWN INDICATION
     Route: 048
     Dates: start: 20090930
  9. ZOLPIDEM [Concomitant]
     Route: 048
     Dates: end: 20090929
  10. DOMINAL [Suspect]
     Indication: ILL-DEFINED DISORDER
     Route: 048
     Dates: start: 20090930
  11. FUROSEMID [Concomitant]
     Route: 048

REACTIONS (3)
  - BLOOD CREATININE INCREASED [None]
  - HYPERKALAEMIA [None]
  - DEATH [None]
